FAERS Safety Report 5505476-4 (Version None)
Quarter: 2007Q4

REPORT INFORMATION
  Report Type: 
  Country: None (occurrence: None)
  Receive Date: 20071102
  Receipt Date: 20071024
  Transmission Date: 20080405
  Serious: Yes (Other)
  Sender: FDA-Public Use
  Company Number: CN-JNJFOC-20070100468

PATIENT
  Age: 27 Year
  Sex: Female

DRUGS (2)
  1. GYNO-DAKTARIN [Suspect]
     Route: 067
     Dates: start: 20061221, end: 20061225
  2. GYNO-DAKTARIN [Suspect]
     Indication: VAGINAL CANDIDIASIS
     Route: 067
     Dates: start: 20061221, end: 20061225

REACTIONS (2)
  - DRUG EXPOSURE DURING PREGNANCY [None]
  - INTRA-UTERINE DEATH [None]
